FAERS Safety Report 21054698 (Version 2)
Quarter: 2022Q4

REPORT INFORMATION
  Report Type: Other
  Country: CA (occurrence: CA)
  Receive Date: 20220707
  Receipt Date: 20221129
  Transmission Date: 20230113
  Serious: Yes (Life-Threatening, Hospitalization, Other)
  Sender: FDA-Public Use
  Company Number: CA-ROCHE-3126512

PATIENT
  Age: 70 Year
  Sex: Female
  Weight: 48 kg

DRUGS (5)
  1. XOLAIR [Suspect]
     Active Substance: OMALIZUMAB
     Indication: Asthma
     Route: 058
     Dates: start: 20201118
  2. XOLAIR [Suspect]
     Active Substance: OMALIZUMAB
     Route: 058
     Dates: start: 20210202
  3. XOLAIR [Suspect]
     Active Substance: OMALIZUMAB
     Route: 058
  4. XOLAIR [Suspect]
     Active Substance: OMALIZUMAB
     Route: 058
     Dates: start: 20210922
  5. XOLAIR [Suspect]
     Active Substance: OMALIZUMAB
     Route: 058

REACTIONS (22)
  - Feeling abnormal [Unknown]
  - Pneumonia fungal [Unknown]
  - Bronchopulmonary aspergillosis [Unknown]
  - Mobility decreased [Unknown]
  - Dyspnoea exertional [Recovered/Resolved]
  - Spinal fracture [Unknown]
  - Movement disorder [Unknown]
  - Pneumonia [Unknown]
  - Peripheral artery occlusion [Unknown]
  - Pain in extremity [Unknown]
  - Gait inability [Unknown]
  - Hypokinesia [Unknown]
  - Productive cough [Unknown]
  - Musculoskeletal chest pain [Unknown]
  - Fall [Unknown]
  - Costal cartilage fracture [Unknown]
  - Rib fracture [Unknown]
  - Dyspnoea [Unknown]
  - Pain [Unknown]
  - Oedema peripheral [Unknown]
  - Fatigue [Not Recovered/Not Resolved]
  - Wrong technique in product usage process [Unknown]

NARRATIVE: CASE EVENT DATE: 20210113
